FAERS Safety Report 9491410 (Version 2)
Quarter: 2013Q1

REPORT INFORMATION
  Report Type: Report from Study
  Country: US (occurrence: US)
  Receive Date: 20120619
  Receipt Date: 20120619
  Transmission Date: 20140127
  Serious: Yes (Hospitalization)
  Sender: FDA-Public Use
  Company Number: US-LUNDBECK-DKLU1061929

PATIENT
  Age: 15 None
  Sex: Male
  Weight: 37.2 kg

DRUGS (10)
  1. CLOBAZAM [Suspect]
     Indication: LENNOX-GASTAUT SYNDROME
     Route: 048
     Dates: start: 20090312, end: 20090318
  2. CLOBAZAM [Suspect]
     Route: 048
     Dates: start: 20090312, end: 20090318
  3. CLOBAZAM [Suspect]
     Route: 048
     Dates: start: 20090318, end: 20090326
  4. CLOBAZAM [Suspect]
     Route: 048
     Dates: start: 20090327, end: 20090916
  5. CLOBAZAM [Suspect]
     Route: 048
     Dates: start: 20090917
  6. LAMICTAL [Concomitant]
     Indication: CONVULSION
     Route: 048
     Dates: start: 20080429
  7. ZARONTIN [Concomitant]
     Indication: CONVULSION
     Route: 048
     Dates: start: 20080624
  8. ZARONTIN [Concomitant]
     Indication: CONVULSION
     Route: 048
     Dates: start: 20080624
  9. ZONEGRAN [Concomitant]
     Indication: CONVULSION
     Route: 048
     Dates: start: 20070628
  10. BANZEL [Concomitant]
     Indication: CONVULSION
     Route: 048
     Dates: start: 200904

REACTIONS (1)
  - Convulsion [Recovered/Resolved]
